FAERS Safety Report 16805812 (Version 2)
Quarter: 2019Q3

REPORT INFORMATION
  Report Type: Spontaneous
  Country: JP (occurrence: JP)
  Receive Date: 20190913
  Receipt Date: 20190924
  Transmission Date: 20191005
  Serious: Yes (Life-Threatening, Hospitalization, Other)
  Sender: FDA-Public Use
  Company Number: JP-SAKK-2019SA254544AA

PATIENT
  Age: 55 Year
  Sex: Male
  Weight: 52 kg

DRUGS (1)
  1. FABRAZYME [Suspect]
     Active Substance: AGALSIDASE BETA
     Indication: FABRY^S DISEASE
     Dosage: 50 MG, QOW
     Route: 041
     Dates: start: 200611

REACTIONS (4)
  - Angina pectoris [Recovered/Resolved with Sequelae]
  - Cardiac failure [Unknown]
  - Atrial fibrillation [Recovered/Resolved with Sequelae]
  - Myocardial infarction [Recovered/Resolved with Sequelae]

NARRATIVE: CASE EVENT DATE: 201908
